FAERS Safety Report 7752702-7 (Version None)
Quarter: 2011Q3

REPORT INFORMATION
  Report Type: 
  Country: None (occurrence: None)
  Receive Date: 20110915
  Receipt Date: 20110908
  Transmission Date: 20111222
  Serious: Yes (Other)
  Sender: FDA-Public Use
  Company Number: GR-PFIZER INC-2011213256

PATIENT
  Age: 54 Year
  Sex: Female

DRUGS (2)
  1. NEURONTIN [Suspect]
     Indication: EPILEPSY
     Dosage: UNK
     Route: 048
     Dates: end: 20091101
  2. NEURONTIN [Suspect]
     Dosage: UNK
     Route: 048
     Dates: start: 20100101, end: 20100101

REACTIONS (6)
  - PERSECUTORY DELUSION [None]
  - BALANCE DISORDER [None]
  - ANAEMIA [None]
  - CONSTIPATION [None]
  - INTESTINAL HAEMORRHAGE [None]
  - OBSESSIVE THOUGHTS [None]
